FAERS Safety Report 14454157 (Version 2)
Quarter: 2018Q1

REPORT INFORMATION
  Report Type: Report from Study
  Country: CA (occurrence: CA)
  Receive Date: 20180129
  Receipt Date: 20180207
  Transmission Date: 20180509
  Serious: Yes (Death)
  Sender: FDA-Public Use
  Company Number: CA-HLSUS-2018-CA-000154

PATIENT
  Age: 28 Year
  Sex: Female

DRUGS (1)
  1. CLOZARIL [Suspect]
     Active Substance: CLOZAPINE
     Indication: SCHIZOPHRENIA
     Dosage: 100 MG IN THE MORNING AND 500 MG AT BEDTIME
     Route: 048
     Dates: start: 20110609, end: 20171204

REACTIONS (7)
  - Completed suicide [Fatal]
  - Mood swings [Unknown]
  - Insomnia [Unknown]
  - Schizophrenia [Unknown]
  - Nightmare [Unknown]
  - Anxiety [Unknown]
  - Agitation [Unknown]

NARRATIVE: CASE EVENT DATE: 20171204
